FAERS Safety Report 4771313-9 (Version None)
Quarter: 2005Q3

REPORT INFORMATION
  Report Type: 
  Country: None (occurrence: None)
  Receive Date: 20050915
  Receipt Date: 20041215
  Transmission Date: 20060218
  Serious: Yes (Hospitalization, Disabling)
  Sender: FDA-Public Use
  Company Number: AU-MERCK-0412AUS00139

PATIENT
  Age: 46 Year
  Sex: Female

DRUGS (2)
  1. VIOXX [Suspect]
     Route: 048
     Dates: start: 20030101, end: 20030818
  2. ACETAMINOPHEN AND ASPIRIN AND CAFFEINE AND HYDROCODONE BITARTRATE [Concomitant]
     Indication: ANALGESIC EFFECT
     Route: 065

REACTIONS (4)
  - CARDIAC DISORDER [None]
  - CIRCULATORY COLLAPSE [None]
  - FALL [None]
  - MYOCARDIAL INFARCTION [None]
